FAERS Safety Report 7623432-7 (Version None)
Quarter: 2011Q3

REPORT INFORMATION
  Report Type: 
  Country: None (occurrence: None)
  Receive Date: 20110720
  Receipt Date: 20110712
  Transmission Date: 20111222
  Serious: Yes (Hospitalization)
  Sender: FDA-Public Use
  Company Number: CL-SANOFI-AVENTIS-2011SA045382

PATIENT
  Age: 72 Year
  Sex: Female

DRUGS (3)
  1. LOSARTAN [Concomitant]
     Indication: HYPERTENSION
  2. CAPECITABINE [Suspect]
     Indication: RECTAL CANCER
     Dosage: DOSE REPORTED AS 2000 MG IN THE MORNING AND 1500 MG IN THE NIGHT.
     Route: 048
     Dates: start: 20110511
  3. OXALIPLATIN [Suspect]
     Indication: RECTAL CANCER
     Route: 042
     Dates: start: 20110511

REACTIONS (1)
  - ARTHRITIS [None]
